FAERS Safety Report 12253599 (Version 2)
Quarter: 2016Q4

REPORT INFORMATION
  Report Type: Spontaneous
  Country: US (occurrence: US)
  Receive Date: 20160411
  Receipt Date: 20161205
  Transmission Date: 20170207
  Serious: Yes (Other)
  Sender: FDA-Public Use
  Company Number: US-ELI_LILLY_AND_COMPANY-US201604000368

PATIENT
  Sex: Female

DRUGS (6)
  1. CYMBALTA [Suspect]
     Active Substance: DULOXETINE HYDROCHLORIDE
     Indication: DEPRESSION
     Dosage: 30 MG, QD
     Route: 048
     Dates: start: 201401
  2. XANAX [Concomitant]
     Active Substance: ALPRAZOLAM
     Indication: ANXIETY
     Dosage: 0.5 MG, PRN
     Route: 065
  3. AMBIEN [Concomitant]
     Active Substance: ZOLPIDEM TARTRATE
     Indication: PRODUCT USED FOR UNKNOWN INDICATION
     Dosage: 5 MG, PRN
     Route: 065
  4. IBUPROFEN. [Concomitant]
     Active Substance: IBUPROFEN
     Indication: PRODUCT USED FOR UNKNOWN INDICATION
     Dosage: 800 MG, PRN
     Route: 065
  5. CYMBALTA [Suspect]
     Active Substance: DULOXETINE HYDROCHLORIDE
     Indication: NECK PAIN
     Dosage: 60 MG, QD
     Route: 048
     Dates: start: 2014, end: 2015
  6. COLACE [Concomitant]
     Active Substance: DOCUSATE SODIUM
     Indication: PRODUCT USED FOR UNKNOWN INDICATION
     Dosage: 50 MG, PRN
     Route: 065

REACTIONS (26)
  - Paraesthesia [Unknown]
  - Tremor [Unknown]
  - Drug withdrawal syndrome [Unknown]
  - Memory impairment [Unknown]
  - Sleep disorder [Unknown]
  - Ankle fracture [Unknown]
  - Anxiety [Unknown]
  - Tinnitus [Unknown]
  - Aggression [Unknown]
  - Confusional state [Unknown]
  - Fatigue [Unknown]
  - Disturbance in attention [Unknown]
  - Insomnia [Unknown]
  - Dizziness [Unknown]
  - Nightmare [Unknown]
  - Irritability [Unknown]
  - Headache [Unknown]
  - Suicidal ideation [Unknown]
  - Dysphoria [Unknown]
  - Mood swings [Unknown]
  - Sensory disturbance [Unknown]
  - Agitation [Unknown]
  - Diarrhoea [Unknown]
  - Migraine [Unknown]
  - Vertigo [Unknown]
  - Fall [Unknown]
